FAERS Safety Report 6602911-5 (Version None)
Quarter: 2010Q1

REPORT INFORMATION
  Report Type: 
  Country: None (occurrence: None)
  Receive Date: 20100219
  Receipt Date: 20080701
  Transmission Date: 20100710
  Serious: Yes (Death, Hospitalization)
  Sender: FDA-Public Use
  Company Number: 2009-2689

PATIENT
  Sex: Male

DRUGS (2)
  1. APOKYN [Suspect]
     Indication: PARKINSON'S DISEASE
     Dosage: 0.3 ML,, SUBCUTANEOUS
     Route: 058
  2. UNSPECIFIED ORAL MEDICATIONS (ALL OTHER THERAPEUTIC PRODUCTS) [Concomitant]

REACTIONS (4)
  - GAIT DISTURBANCE [None]
  - PNEUMONIA [None]
  - RENAL FAILURE [None]
  - WEANING FAILURE [None]
